FAERS Safety Report 19766599 (Version 1)
Quarter: 2021Q3

REPORT INFORMATION
  Report Type: Spontaneous
  Country: US (occurrence: US)
  Receive Date: 20210831
  Receipt Date: 20210831
  Transmission Date: 20211014
  Serious: No
  Sender: FDA-Public Use
  Company Number: US-ORGANON-O2108USA001822

PATIENT
  Sex: Female

DRUGS (2)
  1. CARDIAZEM [DILTIAZEM HYDROCHLORIDE] [Concomitant]
  2. ASMANEX [Suspect]
     Active Substance: MOMETASONE FUROATE
     Indication: ASTHMA
     Dosage: UNK, 2 PUFFS A DAY
     Route: 048

REACTIONS (3)
  - Wheezing [Recovered/Resolved]
  - Poor quality device used [Unknown]
  - Device malfunction [Unknown]
